FAERS Safety Report 7399592-2 (Version None)
Quarter: 2011Q2

REPORT INFORMATION
  Report Type: 
  Country: None (occurrence: None)
  Receive Date: 20110407
  Receipt Date: 20101021
  Transmission Date: 20111010
  Serious: Yes (Hospitalization, Other)
  Sender: FDA-Public Use
  Company Number: US-BAYER-200938755NA

PATIENT
  Sex: Female
  Weight: 52.273 kg

DRUGS (5)
  1. YASMIN [Suspect]
     Route: 048
     Dates: start: 20030101, end: 20090901
  2. CEFTIN [Concomitant]
     Indication: URINARY TRACT INFECTION
  3. PHENAZOPYRIDINE HCL TAB [Concomitant]
     Indication: URINARY TRACT INFECTION
  4. OCELLA [Suspect]
     Route: 048
     Dates: start: 20040101, end: 20090901
  5. YAZ [Suspect]

REACTIONS (1)
  - PULMONARY EMBOLISM [None]
